FAERS Safety Report 14119435 (Version 1)
Quarter: 2017Q4

REPORT INFORMATION
  Report Type: Spontaneous
  Country: US (occurrence: US)
  Receive Date: 20171024
  Receipt Date: 20171024
  Transmission Date: 20180321
  Serious: Yes (Other)
  Sender: FDA-Public Use
  Company Number: None

PATIENT
  Age: 70 Year
  Sex: Male
  Weight: 106.9 kg

DRUGS (1)
  1. NAROPIN [Suspect]
     Active Substance: ROPIVACAINE HYDROCHLORIDE
     Indication: SHOULDER ARTHROPLASTY
     Dosage: OTHER FREQUENCY:ONCE;OTHER ROUTE:INTRASCALENE?
     Dates: start: 20171023, end: 20171023

REACTIONS (2)
  - Therapy non-responder [None]
  - Procedural pain [None]

NARRATIVE: CASE EVENT DATE: 20171023
